FAERS Safety Report 7375301-8 (Version None)
Quarter: 2011Q1

REPORT INFORMATION
  Report Type: 
  Country: None (occurrence: None)
  Receive Date: 20110325
  Receipt Date: 20110315
  Transmission Date: 20110831
  Serious: Yes (Death)
  Sender: FDA-Public Use
  Company Number: DE-ACTELION-A-US2011-46364

PATIENT

DRUGS (1)
  1. VENTAVIS [Suspect]
     Dosage: 2.5 UG, Q4H
     Route: 055
     Dates: start: 20110201

REACTIONS (1)
  - DEATH [None]
